FAERS Safety Report 9552006 (Version 1)
Quarter: 2013Q3

REPORT INFORMATION
  Report Type: Spontaneous
  Country: US (occurrence: None)
  Receive Date: 20130730
  Receipt Date: 20130730
  Transmission Date: 20140515
  Serious: Yes (Other)
  Sender: FDA-Public Use
  Company Number: 1697264

PATIENT
  Age: 66 Year
  Sex: Male

DRUGS (3)
  1. GEMCITABINE FOR INJECTION, USP (GEMCITABINE HYDROCHLORIDE) [Suspect]
     Indication: CHEMOTHERAPY
  2. CISPLATIN [Suspect]
     Indication: CHEMOTHERAPY
  3. INVESTIGATIONAL DRUG [Suspect]
     Indication: PROPHYLAXIS OF NAUSEA AND VOMITING

REACTIONS (1)
  - Thrombocytopenia [None]
